FAERS Safety Report 16548253 (Version 2)
Quarter: 2019Q3

REPORT INFORMATION
  Report Type: Report from Study
  Country: CA (occurrence: CA)
  Receive Date: 20190709
  Receipt Date: 20190724
  Transmission Date: 20191004
  Serious: Yes (Death, Other)
  Sender: FDA-Public Use
  Company Number: CA-TEVA-2019-CA-1073311

PATIENT
  Age: 34 Year
  Sex: Male

DRUGS (7)
  1. METHANOL [Suspect]
     Active Substance: METHYL ALCOHOL
     Indication: PRODUCT USED FOR UNKNOWN INDICATION
     Route: 050
  2. CODEINE [Suspect]
     Active Substance: CODEINE
     Indication: PRODUCT USED FOR UNKNOWN INDICATION
     Route: 048
  3. ACETONE [Suspect]
     Active Substance: ACETONE
     Indication: PRODUCT USED FOR UNKNOWN INDICATION
     Route: 045
  4. LEVOMEPROMAZINE [Suspect]
     Active Substance: LEVOMEPROMAZINE
     Indication: PRODUCT USED FOR UNKNOWN INDICATION
     Route: 050
  5. OLANZAPINE. [Suspect]
     Active Substance: OLANZAPINE
     Indication: PRODUCT USED FOR UNKNOWN INDICATION
     Route: 050
  6. DIAZEPAM. [Suspect]
     Active Substance: DIAZEPAM
     Indication: PRODUCT USED FOR UNKNOWN INDICATION
     Route: 048
  7. ALCOHOL. [Suspect]
     Active Substance: ALCOHOL
     Indication: PRODUCT USED FOR UNKNOWN INDICATION
     Route: 048

REACTIONS (3)
  - Substance abuse [Fatal]
  - Chemical poisoning [Fatal]
  - Toxicity to various agents [Fatal]
